FAERS Safety Report 13518334 (Version 1)
Quarter: 2017Q2

REPORT INFORMATION
  Report Type: Report from Study
  Country: MX (occurrence: MX)
  Receive Date: 20170505
  Receipt Date: 20170505
  Transmission Date: 20170830
  Serious: Yes (Other)
  Sender: FDA-Public Use
  Company Number: PHHY2017MX064149

PATIENT
  Age: 59 Year
  Sex: Female

DRUGS (9)
  1. OXCARBAZEPINE. [Suspect]
     Active Substance: OXCARBAZEPINE
     Indication: PRODUCT USED FOR UNKNOWN INDICATION
     Route: 065
  2. CORTISONE [Suspect]
     Active Substance: CORTISONE\HYDROCORTISONE
     Indication: PRODUCT USED FOR UNKNOWN INDICATION
     Route: 065
  3. TRILEPTAL [Suspect]
     Active Substance: OXCARBAZEPINE
     Indication: EPILEPSY
     Dosage: 2 DF, QD
     Route: 065
     Dates: start: 2009
  4. TRILEPTAL [Suspect]
     Active Substance: OXCARBAZEPINE
     Dosage: 3 DF, QD (1 IN THE MORNING AND 2 AT NIGHT)
     Route: 065
  5. TRILEPTAL [Suspect]
     Active Substance: OXCARBAZEPINE
     Dosage: 0.25 DF, UNK
     Route: 065
  6. TRILEPTAL [Suspect]
     Active Substance: OXCARBAZEPINE
     Dosage: 1 DF, BID (1 IN THE MORNING AND 1 AT NIGHT)
     Route: 065
     Dates: end: 201612
  7. INFLUENZA VACCINE [Suspect]
     Active Substance: INFLUENZA VIRUS VACCINE
     Indication: PRODUCT USED FOR UNKNOWN INDICATION
     Route: 065
  8. KEPPRA [Concomitant]
     Active Substance: LEVETIRACETAM
     Indication: PRODUCT USED FOR UNKNOWN INDICATION
     Dosage: 3 DF, QD
     Route: 065
  9. DEXTROAMPHETAMINE. [Concomitant]
     Active Substance: DEXTROAMPHETAMINE
     Indication: PRODUCT USED FOR UNKNOWN INDICATION
     Route: 065

REACTIONS (19)
  - Pain [Unknown]
  - Epilepsy [Unknown]
  - Dyspnoea [Unknown]
  - Weight increased [Unknown]
  - Haematemesis [Unknown]
  - Urticaria [Unknown]
  - Papule [Unknown]
  - Drug intolerance [Unknown]
  - Leprosy [Unknown]
  - Dysphagia [Unknown]
  - Haemorrhagic urticaria [Unknown]
  - Intestinal ulcer [Unknown]
  - Blister [Unknown]
  - Visual impairment [Unknown]
  - Corneal thinning [Unknown]
  - Rhinitis allergic [Unknown]
  - Wrong technique in product usage process [Unknown]
  - Pigmentation disorder [Unknown]
  - Blood pressure increased [Unknown]

NARRATIVE: CASE EVENT DATE: 20161201
